FAERS Safety Report 23065957 (Version 1)
Quarter: 2023Q4

REPORT INFORMATION
  Report Type: Spontaneous
  Country: SK (occurrence: SK)
  Receive Date: 20231014
  Receipt Date: 20231014
  Transmission Date: 20240110
  Serious: Yes (Hospitalization, Other)
  Sender: FDA-Public Use
  Company Number: SK-JNJFOC-20231000395

PATIENT
  Age: 78 Year
  Sex: Female

DRUGS (8)
  1. MELPHALAN [Suspect]
     Active Substance: MELPHALAN
     Indication: Plasma cell myeloma
     Dosage: CYCLE 2-9 (6 WEEKS)
     Route: 048
  2. MELPHALAN [Suspect]
     Active Substance: MELPHALAN
     Dosage: 9 MILLIGRAM/SQ. METER
     Route: 048
  3. VELCADE [Suspect]
     Active Substance: BORTEZOMIB
     Indication: Plasma cell myeloma
     Dosage: 1.3 MILLIGRAM/SQ. METER, EVERY WEEK (CYCLE 2-9 (6 WEEKS))
     Route: 058
  4. VELCADE [Suspect]
     Active Substance: BORTEZOMIB
     Dosage: 1.3 MILLIGRAM/SQ. METER
     Route: 058
  5. DARZALEX [Suspect]
     Active Substance: DARATUMUMAB
     Indication: Plasma cell myeloma
     Dosage: 1800 MILLIGRAM, CYCLE 2-9 (6 WEEKS)
     Route: 058
  6. DARZALEX [Suspect]
     Active Substance: DARATUMUMAB
     Dosage: 1800 MILLIGRAM, EVERY WEEK, CYCLE 1 (6 WEEKS)
     Route: 058
  7. PREDNISONE [Suspect]
     Active Substance: PREDNISONE
     Indication: Plasma cell myeloma
     Dosage: 60 MILLIGRAM/SQ. METER, ONCE A DAY
     Route: 065
  8. PREDNISONE [Suspect]
     Active Substance: PREDNISONE
     Dosage: 60 MILLIGRAM/SQ. METER, ONCE A DAY, (1-4)
     Route: 065

REACTIONS (4)
  - Anaphylactic reaction [Unknown]
  - Atrial flutter [Unknown]
  - Leukopenia [Unknown]
  - Infusion related reaction [Unknown]
